FAERS Safety Report 12322159 (Version 1)
Quarter: 2016Q2

REPORT INFORMATION
  Report Type: Spontaneous
  Country: US (occurrence: US)
  Receive Date: 20160502
  Receipt Date: 20160502
  Transmission Date: 20160815
  Serious: Yes (Hospitalization, Other)
  Sender: FDA-Public Use
  Company Number: US-MEDA-2016040104

PATIENT
  Sex: Male
  Weight: 93 kg

DRUGS (1)
  1. MUSE [Suspect]
     Active Substance: ALPROSTADIL
     Indication: ERECTILE DYSFUNCTION
     Route: 066

REACTIONS (7)
  - Product quality issue [Unknown]
  - Infection [Unknown]
  - Colostomy [Recovered/Resolved]
  - Drug ineffective [Unknown]
  - Wrong technique in product usage process [Recovered/Resolved]
  - Clostridium difficile infection [Recovered/Resolved]
  - Cholecystectomy [Recovered/Resolved]

NARRATIVE: CASE EVENT DATE: 2015
